FAERS Safety Report 5120574-5 (Version None)
Quarter: 2006Q4

REPORT INFORMATION
  Report Type: 
  Country: None (occurrence: None)
  Receive Date: 20061004
  Receipt Date: 19950214
  Transmission Date: 20070319
  Serious: Yes (Hospitalization, Disabling)
  Sender: FDA-Public Use
  Company Number: NO-ROCHE-950194013001

PATIENT
  Age: 29 Year
  Sex: Female
  Weight: 53 kg

DRUGS (1)
  1. INTERFERON ALFA-2A [Suspect]
     Indication: MULTIPLE SCLEROSIS
     Route: 058
     Dates: start: 19941205, end: 19950206

REACTIONS (2)
  - DEAFNESS [None]
  - SINUSITIS [None]
